FAERS Safety Report 5060403-1 (Version None)
Quarter: 2006Q3

REPORT INFORMATION
  Report Type: 
  Country: None (occurrence: None)
  Receive Date: 20060725
  Receipt Date: 20060718
  Transmission Date: 20061208
  Serious: Yes (Other)
  Sender: FDA-Public Use
  Company Number: PHBS2006BR10920

PATIENT
  Age: 14 Year
  Sex: Female
  Weight: 65 kg

DRUGS (1)
  1. COMTAN [Suspect]
     Dosage: 800 MG, ONCE/SINGLE
     Route: 048
     Dates: start: 20060718, end: 20060718

REACTIONS (1)
  - SUICIDE ATTEMPT [None]
